FAERS Safety Report 9275690 (Version 1)
Quarter: 2013Q2

REPORT INFORMATION
  Report Type: Spontaneous
  Country: DE (occurrence: DE)
  Receive Date: 20130507
  Receipt Date: 20130507
  Transmission Date: 20140414
  Serious: Yes (Death)
  Sender: FDA-Public Use
  Company Number: DE-TEVA-401868GER

PATIENT
  Age: 81 Year
  Sex: Female
  Weight: 80 kg

DRUGS (1)
  1. METHOTREXAT [Suspect]
     Indication: RHEUMATOID ARTHRITIS
     Route: 048
     Dates: start: 20130116

REACTIONS (3)
  - Septic shock [Fatal]
  - Mucosal inflammation [Fatal]
  - Pancytopenia [Fatal]
